FAERS Safety Report 22639715 (Version 6)
Quarter: 2023Q4

REPORT INFORMATION
  Report Type: Report from Study
  Country: US (occurrence: None)
  Receive Date: 20230626
  Receipt Date: 20231026
  Transmission Date: 20240109
  Serious: Yes (Hospitalization)
  Sender: FDA-Public Use
  Company Number: US-ROCHE-3367708

PATIENT
  Age: 57 Year
  Sex: Male
  Weight: 89.5 kg

DRUGS (23)
  1. VENETOCLAX [Suspect]
     Active Substance: VENETOCLAX
     Indication: Follicular lymphoma
     Dosage: LAST DOSE: 25/APR/2023
     Route: 048
     Dates: start: 20210718, end: 20230425
  2. OBINUTUZUMAB [Suspect]
     Active Substance: OBINUTUZUMAB
     Indication: Follicular lymphoma
     Route: 042
  3. IBRUTINIB [Suspect]
     Active Substance: IBRUTINIB
     Indication: Follicular lymphoma
     Dosage: LAST DOSE: 25/APR/2023
     Route: 048
     Dates: start: 20210714, end: 20230425
  4. PANTOPRAZOLE [Concomitant]
     Active Substance: PANTOPRAZOLE
  5. BACTRIM [Concomitant]
     Active Substance: SULFAMETHOXAZOLE\TRIMETHOPRIM
  6. PROAIR HFA [Concomitant]
     Active Substance: ALBUTEROL SULFATE
  7. PROVENTIL [Concomitant]
     Active Substance: ALBUTEROL
  8. MAXZIDE [Concomitant]
     Active Substance: HYDROCHLOROTHIAZIDE\TRIAMTERENE
  9. EXFORGE [Concomitant]
     Active Substance: AMLODIPINE BESYLATE\VALSARTAN
  10. PROTONIX [Concomitant]
     Active Substance: PANTOPRAZOLE SODIUM
  11. DELTASONE [Concomitant]
     Active Substance: PREDNISONE
  12. MAXZIDE [Concomitant]
     Active Substance: HYDROCHLOROTHIAZIDE\TRIAMTERENE
  13. BENZONATATE [Concomitant]
     Active Substance: BENZONATATE
     Route: 048
  14. GUAIFENESIN [Concomitant]
     Active Substance: GUAIFENESIN
  15. DEXTROMETHORPHAN [Concomitant]
     Active Substance: DEXTROMETHORPHAN
     Route: 048
  16. ROBITUSSIN DM [Concomitant]
     Active Substance: DEXTROMETHORPHAN HYDROBROMIDE\GUAIFENESIN
  17. INSULIN ASPART [Concomitant]
     Active Substance: INSULIN ASPART
     Route: 058
  18. METFORMIN [Concomitant]
     Active Substance: METFORMIN HYDROCHLORIDE
     Route: 048
  19. ALBUTEROL [Concomitant]
     Active Substance: ALBUTEROL
  20. VANCOMYCIN [Concomitant]
     Active Substance: VANCOMYCIN
     Dosage: HE RECEIVED VANCOMYCIN 1500 MG ON 25/JUN/2023, 26/JUN/2023.
     Route: 042
     Dates: start: 20230623
  21. VANCOMYCIN [Concomitant]
     Active Substance: VANCOMYCIN
     Dosage: HE RECEIVED VANCOMYCIN 1000 MG ON 25/JUN/2023, 26/JUN/2023.
     Route: 042
     Dates: start: 20230624
  22. CEFEPIME [Concomitant]
     Active Substance: CEFEPIME HYDROCHLORIDE
     Route: 042
     Dates: start: 20230624
  23. CEFEPIME [Concomitant]
     Active Substance: CEFEPIME HYDROCHLORIDE
     Route: 042
     Dates: start: 20230702

REACTIONS (4)
  - Interstitial lung disease [Recovered/Resolved]
  - Pericarditis [Recovered/Resolved]
  - Type 2 diabetes mellitus [Unknown]
  - Sepsis [Recovered/Resolved]

NARRATIVE: CASE EVENT DATE: 20230609
